FAERS Safety Report 4846518-9 (Version None)
Quarter: 2005Q4

REPORT INFORMATION
  Report Type: 
  Country: None (occurrence: None)
  Receive Date: 20051201
  Receipt Date: 20051118
  Transmission Date: 20060501
  Serious: Yes (Other)
  Sender: FDA-Public Use
  Company Number: 2005154113

PATIENT
  Age: 28 Year
  Sex: Female
  Weight: 181.4388 kg

DRUGS (3)
  1. CELEBREX [Suspect]
     Indication: ARTHRITIS
     Dosage: 200 MG (200 MG, QD INTERVAL:  DAILY)
     Dates: start: 20051101
  2. ZOLOFT [Suspect]
     Indication: DEPRESSION
     Dosage: (BID INTERVAL:  EVERY DAY)
     Dates: start: 19910101
  3. IBUPROFEN [Suspect]
     Indication: ARTHRITIS
     Dosage: (800 MG)
     Dates: start: 20051001

REACTIONS (25)
  - ABDOMINAL PAIN [None]
  - AMENORRHOEA [None]
  - ANAEMIA [None]
  - ARTHRITIS [None]
  - CARTILAGE INJURY [None]
  - CHOLECYSTECTOMY [None]
  - CHOLELITHIASIS [None]
  - DIARRHOEA [None]
  - DRUG INEFFECTIVE [None]
  - DYSPNOEA [None]
  - FATIGUE [None]
  - GASTRIC BYPASS [None]
  - HEPATITIS C [None]
  - IATROGENIC INJURY [None]
  - JAUNDICE [None]
  - MALAISE [None]
  - MENORRHAGIA [None]
  - MIGRAINE [None]
  - MYOCARDIAL INFARCTION [None]
  - OEDEMA PERIPHERAL [None]
  - PROCEDURAL COMPLICATION [None]
  - SLEEP APNOEA SYNDROME [None]
  - SOMNOLENCE [None]
  - VOMITING [None]
  - WEIGHT INCREASED [None]
